FAERS Safety Report 6158140-5 (Version None)
Quarter: 2009Q2

REPORT INFORMATION
  Report Type: 
  Country: None (occurrence: None)
  Receive Date: 20090417
  Receipt Date: 20070604
  Transmission Date: 20091009
  Serious: Yes (Other)
  Sender: FDA-Public Use
  Company Number: US-ASTRAZENECA-2006UW25001

PATIENT
  Age: 13431 Day
  Sex: Male
  Weight: 112.5 kg

DRUGS (21)
  1. SEROQUEL [Suspect]
     Indication: SLEEP DISORDER
     Dosage: 50 MG TO 200 MG
     Route: 048
     Dates: start: 19970101
  2. RISPERDAL [Concomitant]
  3. DIPHENHYDRAMINE HCL [Concomitant]
  4. METFORMIN HCL [Concomitant]
  5. OMEPRAZOLE [Concomitant]
  6. BENAZEPRIL [Concomitant]
  7. GLIPIZIDE [Concomitant]
  8. RESTORIL [Concomitant]
  9. LIPITOR [Concomitant]
  10. AUGMENTIN '125' [Concomitant]
  11. FLEXERIL [Concomitant]
  12. NIASPAN [Concomitant]
  13. REGLAN [Concomitant]
  14. TYLENOL [Concomitant]
  15. VIOXX [Concomitant]
  16. MUPIROCIN OINTMENT [Concomitant]
  17. CIPROFLOXACIN HCL [Concomitant]
  18. PANAFIL OINTMENT [Concomitant]
  19. ABILIFY [Concomitant]
  20. LOTENSIN [Concomitant]
  21. ZOLOFT [Concomitant]

REACTIONS (11)
  - ARTHRALGIA [None]
  - BACK PAIN [None]
  - CELLULITIS [None]
  - DIABETES MELLITUS [None]
  - DIABETIC RETINOPATHY [None]
  - DISTURBANCE IN ATTENTION [None]
  - ERECTILE DYSFUNCTION [None]
  - FATIGUE [None]
  - HYPERCHOLESTEROLAEMIA [None]
  - IMPAIRED HEALING [None]
  - SLEEP APNOEA SYNDROME [None]
